FAERS Safety Report 21112006 (Version 1)
Quarter: 2022Q3

REPORT INFORMATION
  Report Type: Spontaneous
  Country: DE (occurrence: DE)
  Receive Date: 20220721
  Receipt Date: 20220721
  Transmission Date: 20221027
  Serious: Yes (Other)
  Sender: FDA-Public Use
  Company Number: DE-002147023-NVSC2022DE156262

PATIENT

DRUGS (1)
  1. GABAPENTIN [Suspect]
     Active Substance: GABAPENTIN
     Indication: Seizure
     Dosage: 2400 MG
     Dates: start: 2013

REACTIONS (6)
  - Drug dependence [Unknown]
  - Seizure [Unknown]
  - Coma [Unknown]
  - Suffocation feeling [Unknown]
  - Panic attack [Unknown]
  - Feeling abnormal [Unknown]
